FAERS Safety Report 4433703-3 (Version None)
Quarter: 2004Q3

REPORT INFORMATION
  Report Type: 
  Country: None (occurrence: None)
  Receive Date: 20040824
  Receipt Date: 20040811
  Transmission Date: 20050211
  Serious: Yes (Death)
  Sender: FDA-Public Use
  Company Number: USA-2003-0007572

PATIENT
  Age: 49 Year
  Sex: Male

DRUGS (2)
  1. OXYCODONE HCL [Suspect]
  2. HYDROCODONE BITARTRATE [Suspect]

REACTIONS (2)
  - CONGESTIVE CARDIOMYOPATHY [None]
  - HYPERTENSION [None]
